FAERS Safety Report 19967113 (Version 2)
Quarter: 2021Q4

REPORT INFORMATION
  Report Type: Report from Study
  Country: CA (occurrence: CA)
  Receive Date: 20211019
  Receipt Date: 20211125
  Transmission Date: 20220303
  Serious: Yes (Death, Hospitalization)
  Sender: FDA-Public Use
  Company Number: CA-ABBVIE-21K-028-4124388-00

PATIENT
  Age: 66 Year
  Sex: Female
  Weight: 60.836 kg

DRUGS (2)
  1. CARBIDOPA\LEVODOPA [Suspect]
     Active Substance: CARBIDOPA\LEVODOPA
     Indication: Parkinson^s disease
     Dosage: DUODOPA-LEVODOPA 20MG/ML, CARBIDOPAMONOHYDRATE 5MG/ML
     Route: 050
     Dates: start: 20170301
  2. CARBIDOPA\LEVODOPA [Suspect]
     Active Substance: CARBIDOPA\LEVODOPA
     Route: 050

REACTIONS (4)
  - Acute respiratory failure [Fatal]
  - Wheezing [Unknown]
  - Pleural effusion [Unknown]
  - Atelectasis [Unknown]

NARRATIVE: CASE EVENT DATE: 20210901
